FAERS Safety Report 25312677 (Version 1)
Quarter: 2025Q2

REPORT INFORMATION
  Report Type: Spontaneous
  Country: GB (occurrence: GB)
  Receive Date: 20250514
  Receipt Date: 20250514
  Transmission Date: 20250716
  Serious: Yes (Other)
  Sender: RANBAXY
  Company Number: GB-SUN PHARMACEUTICAL INDUSTRIES LTD-2025R1-506299

PATIENT
  Age: 38 Year
  Sex: Female
  Weight: 74 kg

DRUGS (3)
  1. DUAC [Suspect]
     Active Substance: BENZOYL PEROXIDE\CLINDAMYCIN PHOSPHATE
     Indication: Acne
     Dosage: 1 DOSAGE FORM, QD, (10 MG/G CLINDAMYCIN + 50 MG/G ANHYDROUS BENZOYL PEROXIDE ONCE DAILY IN THE EVENI
     Route: 065
     Dates: start: 20250424, end: 20250426
  2. IBUPROFEN [Concomitant]
     Active Substance: IBUPROFEN
     Indication: Product used for unknown indication
     Route: 065
     Dates: start: 20250404, end: 20250407
  3. LEVOTHYROXINE [Concomitant]
     Active Substance: LEVOTHYROXINE
     Indication: Product used for unknown indication
     Route: 065
     Dates: start: 20160401

REACTIONS (2)
  - Face oedema [Not Recovered/Not Resolved]
  - Erythema [Not Recovered/Not Resolved]
